FAERS Safety Report 26041560 (Version 1)
Quarter: 2025Q4

REPORT INFORMATION
  Report Type: Spontaneous
  Country: EU (occurrence: EU)
  Receive Date: 20251113
  Receipt Date: 20251113
  Transmission Date: 20260118
  Serious: Yes (Hospitalization, Other)
  Sender: ALEXION PHARMACEUTICALS
  Company Number: None

PATIENT
  Age: 31 Year
  Sex: Male
  Weight: 72 kg

DRUGS (4)
  1. ESOMEPRAZOLE [Suspect]
     Active Substance: ESOMEPRAZOLE
     Dosage: 1 PIECE TWICE A DAY
     Dates: start: 20250813
  2. NAPROXEN [Concomitant]
     Active Substance: NAPROXEN
     Dosage: TABLET, 500 MG (MILLIGRAM)
  3. CLARITHROMYCIN [Suspect]
     Active Substance: CLARITHROMYCIN
     Indication: Helicobacter infection
     Dosage: 1 PIECE TWICE A DAY
     Dates: start: 20250813
  4. AMOXICILLIN [Suspect]
     Active Substance: AMOXICILLIN
     Indication: Helicobacter infection
     Dosage: 1 PIECE TWICE A DAY
     Dates: start: 20250813

REACTIONS (1)
  - Clostridial infection [Not Recovered/Not Resolved]
